FAERS Safety Report 21840041 (Version 1)
Quarter: 2023Q1

REPORT INFORMATION
  Report Type: Spontaneous
  Country: FR (occurrence: FR)
  Receive Date: 20230110
  Receipt Date: 20230110
  Transmission Date: 20230417
  Serious: Yes (Life-Threatening)
  Sender: FDA-Public Use
  Company Number: FR-AFSSAPS-NT20223000

PATIENT
  Age: 14 Year
  Sex: Male
  Weight: 51 kg

DRUGS (2)
  1. ACETAMINOPHEN [Suspect]
     Active Substance: ACETAMINOPHEN
     Indication: Influenza
     Dosage: UNK
     Route: 048
     Dates: start: 20221123
  2. ASPIRIN [Suspect]
     Active Substance: ASPIRIN
     Indication: Influenza
     Dosage: UNK
     Route: 048
     Dates: start: 20221123

REACTIONS (3)
  - Shock haemorrhagic [Recovered/Resolved]
  - Peptic ulcer haemorrhage [Recovered/Resolved]
  - Haematemesis [Recovered/Resolved]

NARRATIVE: CASE EVENT DATE: 20221126
